FAERS Safety Report 6917941-3 (Version None)
Quarter: 2010Q3

REPORT INFORMATION
  Report Type: 
  Country: None (occurrence: None)
  Receive Date: 20100810
  Receipt Date: 20090825
  Transmission Date: 20110219
  Serious: No
  Sender: FDA-Public Use
  Company Number: US-PFIZER INC-2009263413

PATIENT
  Sex: Male
  Weight: 79.4 kg

DRUGS (2)
  1. TOVIAZ [Suspect]
     Indication: BLADDER DISORDER
     Dosage: 4 MG, 1X/DAY DAILY DOSE: 4 MG
     Route: 048
     Dates: start: 20090822, end: 20090825
  2. SPIRIVA [Concomitant]

REACTIONS (3)
  - INSOMNIA [None]
  - NIGHTMARE [None]
  - POOR QUALITY SLEEP [None]
